FAERS Safety Report 6023417-0 (Version None)
Quarter: 2008Q4

REPORT INFORMATION
  Report Type: 
  Country: None (occurrence: None)
  Receive Date: 20081223
  Receipt Date: 20081208
  Transmission Date: 20090506
  Serious: Yes (Congenital Anomaly, Other)
  Sender: FDA-Public Use
  Company Number: 1000001649

PATIENT
  Sex: Female

DRUGS (2)
  1. CITALOPRAM HYDROBROMIDE [Suspect]
     Dosage: 20 MG (20 MG, 1 IN 1 D), TRANSPLACENTAL
     Route: 064
     Dates: end: 20080121
  2. LABETALOL [Concomitant]

REACTIONS (7)
  - CAESAREAN SECTION [None]
  - DRUG EXPOSURE DURING PREGNANCY [None]
  - FALLOT'S TETRALOGY [None]
  - HEAD DEFORMITY [None]
  - HYPOCALCAEMIA [None]
  - PLAGIOCEPHALY [None]
  - PREMATURE BABY [None]
